FAERS Safety Report 23320918 (Version 2)
Quarter: 2023Q4

REPORT INFORMATION
  Report Type: Report from Study
  Country: BE (occurrence: BE)
  Receive Date: 20231220
  Receipt Date: 20231220
  Transmission Date: 20240109
  Serious: Yes (Death)
  Sender: FDA-Public Use
  Company Number: BE-ALNYLAM PHARMACEUTICALS, INC.-ALN-2023-006791

PATIENT

DRUGS (1)
  1. ONPATTRO [Suspect]
     Active Substance: PATISIRAN SODIUM
     Indication: Hereditary neuropathic amyloidosis
     Dosage: 20 MILLIGRAM, EVERY 2 WEEKS
     Route: 042

REACTIONS (2)
  - Death [Fatal]
  - Inappropriate schedule of product administration [Unknown]
